FAERS Safety Report 19390450 (Version 5)
Quarter: 2021Q3

REPORT INFORMATION
  Report Type: Report from Study
  Country: AU (occurrence: AU)
  Receive Date: 20210608
  Receipt Date: 20210727
  Transmission Date: 20211014
  Serious: Yes (Hospitalization)
  Sender: FDA-Public Use
  Company Number: AU-GLAXOSMITHKLINE-AU2021GSK098579

PATIENT
  Age: 72 Year
  Sex: Male

DRUGS (20)
  1. SEVREDOL [Concomitant]
     Active Substance: MORPHINE
     Indication: BACK PAIN
     Dosage: 10 MG, AS REQUIRED
     Route: 048
     Dates: start: 202103
  2. PARACETAMOL OSTEO [Concomitant]
     Indication: PAIN
     Dosage: 1330 MG, AS REQUIRED
     Route: 048
     Dates: start: 2019
  3. ZOMETA [Concomitant]
     Active Substance: ZOLEDRONIC ACID
     Indication: HYPERCALCAEMIA
     Dosage: 4 MG, AS REQUIRED
     Route: 042
     Dates: start: 20210427
  4. METOCLOPRAMIDE. [Concomitant]
     Active Substance: METOCLOPRAMIDE
     Indication: NAUSEA
     Dosage: 10 MG, AS REQUIRED
     Route: 048
     Dates: start: 2019
  5. SEVREDOL [Concomitant]
     Active Substance: MORPHINE
     Indication: ARTHRALGIA
     Dosage: 10 MG, AS REQUIRED
     Route: 048
     Dates: start: 20210519, end: 20210524
  6. VALACICLOVIR [Concomitant]
     Active Substance: VALACYCLOVIR HYDROCHLORIDE
     Indication: PROPHYLAXIS
     Dosage: 500 MG, QOD
     Route: 048
     Dates: start: 2019
  7. NORMAL SALINE [Concomitant]
     Active Substance: SODIUM CHLORIDE
     Indication: HYPERCALCAEMIA
     Dosage: 1000 ML, 0.9%, AS REQUIRED
     Route: 042
     Dates: start: 20210428
  8. BELANTAMAB MAFODOTIN. [Suspect]
     Active Substance: BELANTAMAB MAFODOTIN
     Indication: PLASMA CELL MYELOMA
     Dosage: 2.5 MG/KG, CYC
     Route: 042
     Dates: start: 20210504
  9. TAPENTADOL [Concomitant]
     Active Substance: TAPENTADOL
     Indication: BACK PAIN
     Dosage: 50 MG, AS REQUIRED
     Route: 048
     Dates: start: 202103
  10. MS CONTIN [Concomitant]
     Active Substance: MORPHINE SULFATE
     Indication: BACK PAIN
     Dosage: 30 MG, BID
     Route: 048
     Dates: start: 202103
  11. SULPHAMETHOXAZOLE?TRIMETHOPRIM [Concomitant]
     Indication: PROPHYLAXIS
     Dosage: 800/160 MG, 2 TIMES PER WEEK
     Route: 048
     Dates: start: 2019
  12. MS CONTIN [Concomitant]
     Active Substance: MORPHINE SULFATE
     Indication: ARTHRALGIA
     Dosage: 60 MG, BID
     Route: 048
     Dates: start: 20210517, end: 20210526
  13. ALLOPURINOL. [Concomitant]
     Active Substance: ALLOPURINOL
     Indication: TUMOUR LYSIS SYNDROME
     Dosage: 300 MG, QOD
     Route: 048
     Dates: start: 20210503
  14. ZOMETA [Concomitant]
     Active Substance: ZOLEDRONIC ACID
     Dosage: 3.3 MG, ONCE
     Route: 042
     Dates: start: 20210519, end: 20210519
  15. COLOXYL AND SENNA [Concomitant]
     Indication: CONSTIPATION
     Dosage: 2 DF, AS REQUIRED
     Route: 048
     Dates: start: 201806
  16. TAPENTADOL [Concomitant]
     Active Substance: TAPENTADOL
     Indication: PAIN
     Dosage: 100 MG, QID
     Route: 048
     Dates: start: 20210505, end: 20210528
  17. TAPENTADOL [Concomitant]
     Active Substance: TAPENTADOL
     Indication: ARTHRALGIA
     Dosage: 100 MG, AS REQUIRED
     Route: 048
     Dates: start: 20210519
  18. MS CONTIN [Concomitant]
     Active Substance: MORPHINE SULFATE
     Indication: PAIN
     Dosage: 105 MG, ONCE
     Route: 048
     Dates: start: 20210515
  19. MS CONTIN [Concomitant]
     Active Substance: MORPHINE SULFATE
     Dosage: 45 MG, BID
     Route: 048
     Dates: start: 20210520
  20. ONDANSETRON [Concomitant]
     Active Substance: ONDANSETRON
     Indication: NAUSEA
     Dosage: 8 MG, AS REQUIRED
     Route: 048
     Dates: start: 2019

REACTIONS (2)
  - Infusion related reaction [Recovered/Resolved]
  - Pain [Recovered/Resolved]

NARRATIVE: CASE EVENT DATE: 20210504
